FAERS Safety Report 6022175-3 (Version None)
Quarter: 2008Q4

REPORT INFORMATION
  Report Type: 
  Country: None (occurrence: None)
  Receive Date: 20081229
  Receipt Date: 20081223
  Transmission Date: 20090506
  Serious: Yes (Hospitalization)
  Sender: FDA-Public Use
  Company Number: US-B.I. PHARMACEUTICALS,INC./RIDGEFIELD-2008-BP-18998BP

PATIENT
  Age: 84 Year
  Sex: Female

DRUGS (7)
  1. MICARDIS [Suspect]
     Indication: HYPERTENSION
     Dosage: 80MG
     Route: 048
     Dates: start: 20060101
  2. INSULIN [Concomitant]
     Indication: TYPE 1 DIABETES MELLITUS
  3. LOPRESSOR [Concomitant]
     Indication: HYPERTENSION
  4. XANAX [Concomitant]
     Indication: NERVOUSNESS
  5. ENAPARIL [Concomitant]
     Indication: HYPERTENSION
  6. LASIX [Concomitant]
     Indication: HYPERTENSION
  7. PLAVIX [Concomitant]
     Indication: TOE AMPUTATION

REACTIONS (4)
  - BLOOD PRESSURE INCREASED [None]
  - CELLULITIS [None]
  - GANGRENE [None]
  - UNDERDOSE [None]
